FAERS Safety Report 12825289 (Version 1)
Quarter: 2016Q4

REPORT INFORMATION
  Report Type: Spontaneous
  Country: US (occurrence: US)
  Receive Date: 20161006
  Receipt Date: 20161006
  Transmission Date: 20170207
  Serious: No
  Sender: FDA-Public Use
  Company Number: US-PFIZER INC-2016464404

PATIENT
  Age: 85 Year
  Sex: Male

DRUGS (1)
  1. LYRICA [Suspect]
     Active Substance: PREGABALIN
     Dosage: UNK
     Dates: start: 20160929

REACTIONS (8)
  - Visual impairment [Not Recovered/Not Resolved]
  - Muscle disorder [Not Recovered/Not Resolved]
  - Somnolence [Not Recovered/Not Resolved]
  - Dysstasia [Unknown]
  - Dizziness [Not Recovered/Not Resolved]
  - Sedation [Unknown]
  - Dyspnoea [Not Recovered/Not Resolved]
  - Feeling abnormal [Unknown]

NARRATIVE: CASE EVENT DATE: 20160930
